FAERS Safety Report 7257986-X (Version None)
Quarter: 2011Q1

REPORT INFORMATION
  Report Type: 
  Country: None (occurrence: None)
  Receive Date: 20110129
  Receipt Date: 20100706
  Transmission Date: 20110831
  Serious: No
  Sender: FDA-Public Use
  Company Number: US-ABBOTT-10P-163-0650730-00

PATIENT
  Sex: Female

DRUGS (11)
  1. FOLIC ACID [Concomitant]
     Indication: IMMUNE SYSTEM DISORDER
  2. LIPITOR [Concomitant]
     Indication: BLOOD CHOLESTEROL INCREASED
  3. HUMIRA [Suspect]
     Indication: RHEUMATOID ARTHRITIS
     Dates: start: 20100526
  4. VITAMIN B COMPLEX [Concomitant]
     Indication: NEUROPATHY PERIPHERAL
  5. ASA [Concomitant]
     Indication: PROPHYLAXIS
  6. MULTIVIT [Concomitant]
     Indication: PRODUCT USED FOR UNKNOWN INDICATION
  7. CYMBALTA [Concomitant]
     Indication: NEUROPATHY PERIPHERAL
  8. LISINOPRIL AND HYDROCHLOROTHIAZIDE [Concomitant]
     Indication: HYPERTENSION
  9. ROPINIROLE [Concomitant]
     Indication: RESTLESS LEGS SYNDROME
  10. VITAMIN D [Concomitant]
     Indication: VITAMIN D DECREASED
  11. VOLTAREN [Concomitant]
     Indication: ARTHRITIS

REACTIONS (4)
  - INJECTION SITE HAEMATOMA [None]
  - LACERATION [None]
  - INJECTION SITE HAEMORRHAGE [None]
  - ORAL HERPES [None]
